FAERS Safety Report 20101661 (Version 1)
Quarter: 2021Q4

REPORT INFORMATION
  Report Type: Other
  Country: GR (occurrence: GR)
  Receive Date: 20211123
  Receipt Date: 20211123
  Transmission Date: 20220303
  Serious: Yes (Life-Threatening, Hospitalization)
  Sender: FDA-Public Use
  Company Number: GR-CELLTRION HEALTHCARE HUNGARY KFT-2021GR015062

PATIENT

DRUGS (1)
  1. RITUXIMAB [Suspect]
     Active Substance: RITUXIMAB
     Indication: Rheumatoid arthritis
     Route: 041

REACTIONS (4)
  - COVID-19 [Recovering/Resolving]
  - Interstitial lung disease [Recovering/Resolving]
  - Immunosuppression [Recovering/Resolving]
  - Respiratory depression [Recovering/Resolving]
